FAERS Safety Report 26205072 (Version 1)
Quarter: 2025Q4

REPORT INFORMATION
  Report Type: Spontaneous
  Country: US (occurrence: US)
  Receive Date: 20251227
  Receipt Date: 20251227
  Transmission Date: 20260118
  Serious: No
  Sender: AMGEN
  Company Number: US-AMGEN-USASP2025254407

PATIENT
  Age: 65 Year
  Sex: Female

DRUGS (4)
  1. AIMOVIG [Suspect]
     Active Substance: ERENUMAB-AOOE
     Indication: Migraine
     Dosage: 140 MILLIGRAM, Q2WK
     Route: 065
  2. AIMOVIG [Suspect]
     Active Substance: ERENUMAB-AOOE
     Indication: Headache
     Dosage: 140 MILLIGRAM, Q2WK
     Route: 065
     Dates: start: 202510
  3. UBRELVY [Interacting]
     Active Substance: UBROGEPANT
     Route: 065
  4. UBRELVY [Interacting]
     Active Substance: UBROGEPANT
     Route: 065

REACTIONS (2)
  - Device difficult to use [Unknown]
  - Headache [Not Recovered/Not Resolved]

NARRATIVE: CASE EVENT DATE: 20251220
